FAERS Safety Report 25371849 (Version 1)
Quarter: 2025Q2

REPORT INFORMATION
  Report Type: Report from Study
  Country: US (occurrence: US)
  Receive Date: 20250529
  Receipt Date: 20250529
  Transmission Date: 20250717
  Serious: Yes (Other)
  Sender: ABBVIE
  Company Number: US-ABBVIE-6302072

PATIENT
  Sex: Female

DRUGS (1)
  1. RINVOQ [Suspect]
     Active Substance: UPADACITINIB
     Indication: Colitis ulcerative
     Route: 048
     Dates: start: 20240717

REACTIONS (7)
  - Polyp [Unknown]
  - Pelvic floor dysfunction [Unknown]
  - Acquired oesophageal web [Unknown]
  - Chronic gastritis [Unknown]
  - Eosinophilic oesophagitis [Unknown]
  - Rectocele [Unknown]
  - Impaired gastric emptying [Unknown]
